FAERS Safety Report 19977316 (Version 1)
Quarter: 2021Q4

REPORT INFORMATION
  Report Type: Spontaneous
  Country: DE (occurrence: DE)
  Receive Date: 20211020
  Receipt Date: 20211020
  Transmission Date: 20220303
  Serious: Yes (Hospitalization, Disabling, Other)
  Sender: FDA-Public Use
  Company Number: DE-DCGMA-21193792

PATIENT
  Age: 76 Year
  Sex: Male

DRUGS (8)
  1. LANREOTIDE ACETATE [Suspect]
     Active Substance: LANREOTIDE ACETATE
     Indication: Neuroendocrine tumour
     Route: 065
  2. PREGABALIN [Concomitant]
     Active Substance: PREGABALIN
  3. INDAPAMIDE [Concomitant]
     Active Substance: INDAPAMIDE
  4. MELPERONE [Concomitant]
     Active Substance: MELPERONE
  5. ASPIRIN [Concomitant]
     Active Substance: ASPIRIN
  6. TORSEMIDE [Concomitant]
     Active Substance: TORSEMIDE
  7. RAMIPRIL [Concomitant]
     Active Substance: RAMIPRIL
  8. METOPROLOL [Concomitant]
     Active Substance: METOPROLOL

REACTIONS (3)
  - Hyperoxaluria [Unknown]
  - Crystal nephropathy [Unknown]
  - End stage renal disease [Unknown]

NARRATIVE: CASE EVENT DATE: 20191101
